FAERS Safety Report 10185942 (Version 1)
Quarter: 2014Q2

REPORT INFORMATION
  Report Type: Spontaneous
  Country: US (occurrence: None)
  Receive Date: 20140520
  Receipt Date: 20140520
  Transmission Date: 20141212
  Serious: Yes (Hospitalization)
  Sender: FDA-Public Use
  Company Number: None

PATIENT
  Age: 9 Month
  Sex: Male
  Weight: 7.6 kg

DRUGS (1)
  1. CHLORHEXIDINE GLUCONATE [Suspect]
     Dosage: PACKETS OF 2% CLEANSING CLOTHS. ?PATIENT USD WIPES FOR 59 DAYS?

REACTIONS (5)
  - Device related sepsis [None]
  - Unresponsive to stimuli [None]
  - Cardiac arrest [None]
  - Hypoxia [None]
  - Brain herniation [None]
